FAERS Safety Report 21969030 (Version 1)
Quarter: 2023Q1

REPORT INFORMATION
  Report Type: Spontaneous
  Country: US (occurrence: None)
  Receive Date: 20230207
  Receipt Date: 20230207
  Transmission Date: 20230418
  Serious: Yes (Death)
  Sender: FDA-Public Use
  Company Number: None

PATIENT
  Age: 76 Year
  Sex: Female

DRUGS (15)
  1. TADALAFIL [Suspect]
     Active Substance: TADALAFIL
     Indication: Pulmonary arterial hypertension
     Dosage: FREQUENCY : DAILY;?
     Route: 048
     Dates: start: 20210701, end: 20221108
  2. SELEXIPAG [Concomitant]
     Active Substance: SELEXIPAG
  3. CARVEDILOL [Concomitant]
     Active Substance: CARVEDILOL
  4. TIMOLOL [Concomitant]
     Active Substance: TIMOLOL
  5. DIFLUPREDNATE [Concomitant]
     Active Substance: DIFLUPREDNATE
  6. VIT B-12 [Concomitant]
  7. CELLCEPT [Concomitant]
     Active Substance: MYCOPHENOLATE MOFETIL
  8. LASIX [Concomitant]
     Active Substance: FUROSEMIDE
  9. K-TAB [Concomitant]
     Active Substance: POTASSIUM CHLORIDE
  10. CETIRIZINE [Concomitant]
     Active Substance: CETIRIZINE HYDROCHLORIDE
  11. ASPIRIN [Concomitant]
     Active Substance: ASPIRIN
  12. VITAMIN D3 [Concomitant]
     Active Substance: CHOLECALCIFEROL
  13. TRIAMCINOLONE [Concomitant]
     Active Substance: TRIAMCINOLONE
  14. SOOLANTRA [Concomitant]
     Active Substance: IVERMECTIN
  15. OPSUMIT [Suspect]
     Active Substance: MACITENTAN

REACTIONS (10)
  - Leukocytosis [None]
  - Lactic acidosis [None]
  - Renal failure [None]
  - Rhabdomyolysis [None]
  - Haematochezia [None]
  - Mental status changes [None]
  - Sepsis [None]
  - Therapy non-responder [None]
  - Respiratory distress [None]
  - Cardiac arrest [None]

NARRATIVE: CASE EVENT DATE: 20221107
